FAERS Safety Report 14881430 (Version 1)
Quarter: 2018Q2

REPORT INFORMATION
  Report Type: Spontaneous
  Country: FR (occurrence: FR)
  Receive Date: 20180511
  Receipt Date: 20180511
  Transmission Date: 20180711
  Serious: Yes (Other)
  Sender: FDA-Public Use
  Company Number: FR-MERCK KGAA-2047617

PATIENT
  Age: 71 Year
  Sex: Female

DRUGS (1)
  1. NOVOTHYROX [Suspect]
     Active Substance: LEVOTHYROXINE SODIUM
     Indication: PRODUCT USED FOR UNKNOWN INDICATION

REACTIONS (33)
  - Blood pressure increased [None]
  - Fatigue [None]
  - Disturbance in attention [None]
  - Blood thyroid stimulating hormone decreased [Not Recovered/Not Resolved]
  - Gamma-glutamyltransferase increased [None]
  - Chills [None]
  - Muscle spasms [None]
  - Gait disturbance [None]
  - Alpha 2 globulin increased [None]
  - Headache [None]
  - Pain [None]
  - Depressed mood [None]
  - Tremor [None]
  - Constipation [None]
  - Amnesia [None]
  - Impaired driving ability [None]
  - Loss of personal independence in daily activities [None]
  - Blood glucose increased [Recovered/Resolved]
  - Monocyte count increased [None]
  - Social avoidant behaviour [None]
  - C-reactive protein increased [None]
  - Apathy [None]
  - Dyspnoea [None]
  - Haemoglobin decreased [Recovered/Resolved]
  - Blood alkaline phosphatase increased [Not Recovered/Not Resolved]
  - Asthenia [None]
  - Fall [None]
  - Depression [None]
  - Mean cell haemoglobin concentration [Not Recovered/Not Resolved]
  - Insomnia [None]
  - Balance disorder [None]
  - Mean cell volume [Recovered/Resolved]
  - Hot flush [None]

NARRATIVE: CASE EVENT DATE: 20170118
